FAERS Safety Report 16875001 (Version 3)
Quarter: 2019Q4

REPORT INFORMATION
  Report Type: Report from Study
  Country: US (occurrence: US)
  Receive Date: 20191001
  Receipt Date: 20191205
  Transmission Date: 20200122
  Serious: Yes (Hospitalization)
  Sender: FDA-Public Use
  Company Number: US-ACTELION-A-NJ2018-170995

PATIENT
  Sex: Female
  Weight: 110.66 kg

DRUGS (8)
  1. UPTRAVI [Suspect]
     Active Substance: SELEXIPAG
     Dosage: 600 MCG, BID
     Route: 048
  2. UPTRAVI [Suspect]
     Active Substance: SELEXIPAG
     Dosage: 800 MCG, BID
     Route: 048
  3. UPTRAVI [Suspect]
     Active Substance: SELEXIPAG
     Dosage: 1000 MCG, BID
     Route: 048
  4. UPTRAVI [Suspect]
     Active Substance: SELEXIPAG
     Indication: PULMONARY ARTERIAL HYPERTENSION
     Dosage: 200 MCG, BID
     Route: 048
  5. UPTRAVI [Suspect]
     Active Substance: SELEXIPAG
     Dosage: 1600 MCG, BID
     Route: 048
  6. UPTRAVI [Suspect]
     Active Substance: SELEXIPAG
     Dosage: 1400 MCG, BID
     Route: 048
  7. SILDENAFIL CITRATE. [Concomitant]
     Active Substance: SILDENAFIL CITRATE
  8. LETAIRIS [Concomitant]
     Active Substance: AMBRISENTAN

REACTIONS (14)
  - Fall [Recovering/Resolving]
  - Muscle fatigue [Unknown]
  - Pain in extremity [Unknown]
  - Blood pressure abnormal [Recovering/Resolving]
  - Thrombosis [Unknown]
  - Balance disorder [Unknown]
  - Fatigue [Unknown]
  - Unevaluable event [Unknown]
  - Arthralgia [Unknown]
  - Headache [Unknown]
  - Dyspnoea [Recovering/Resolving]
  - Dizziness [Unknown]
  - Hypotension [Unknown]
  - Embolism [Unknown]
